FAERS Safety Report 4669913-X (Version None)
Quarter: 2005Q2

REPORT INFORMATION
  Report Type: 
  Country: None (occurrence: None)
  Receive Date: 20050523
  Receipt Date: 20040102
  Transmission Date: 20051028
  Serious: No
  Sender: FDA-Public Use
  Company Number: PHFR2004GB04760

PATIENT

DRUGS (1)
  1. DIOVAN [Suspect]

REACTIONS (2)
  - ARTHRALGIA [None]
  - MYALGIA [None]
